FAERS Safety Report 15638967 (Version 1)
Quarter: 2018Q4

REPORT INFORMATION
  Report Type: Spontaneous
  Country: US (occurrence: US)
  Receive Date: 20181114
  Receipt Date: 20181114
  Transmission Date: 20190205
  Serious: No
  Sender: FDA-Public Use
  Company Number: None

PATIENT
  Age: 73 Year
  Sex: Male

DRUGS (8)
  1. ERLEADA [Suspect]
     Active Substance: APALUTAMIDE
     Indication: NEOPLASM MALIGNANT
     Route: 048
     Dates: start: 20180822
  2. DOXYCYCLINE. [Concomitant]
     Active Substance: DOXYCYCLINE
  3. FAMOTIDINE. [Suspect]
     Active Substance: FAMOTIDINE
  4. BICALUTAMIDE. [Concomitant]
     Active Substance: BICALUTAMIDE
  5. ELIGARD [Suspect]
     Active Substance: LEUPROLIDE ACETATE
  6. BENZONATATE. [Concomitant]
     Active Substance: BENZONATATE
  7. LOSARTAN. [Concomitant]
     Active Substance: LOSARTAN
  8. AMLODIPINE BESYLATE. [Concomitant]
     Active Substance: AMLODIPINE BESYLATE

REACTIONS (1)
  - Drug ineffective [None]
